FAERS Safety Report 5698236-5 (Version None)
Quarter: 2008Q2

REPORT INFORMATION
  Report Type: 
  Country: None (occurrence: None)
  Receive Date: 20080403
  Receipt Date: 20080325
  Transmission Date: 20081010
  Serious: Yes (Life-Threatening)
  Sender: FDA-Public Use
  Company Number: CFNT-209

PATIENT
  Sex: Female

DRUGS (1)
  1. MEIACT (CEFDITOREN PIVOXIL) [Suspect]
     Dosage: PO
     Route: 048

REACTIONS (3)
  - AMMONIA INCREASED [None]
  - CARNITINE DECREASED [None]
  - COMA [None]
